FAERS Safety Report 7501637-3 (Version None)
Quarter: 2011Q2

REPORT INFORMATION
  Report Type: 
  Country: None (occurrence: None)
  Receive Date: 20110524
  Receipt Date: 20110506
  Transmission Date: 20111010
  Serious: Yes (Death, Other)
  Sender: FDA-Public Use
  Company Number: US-WATSON-2011-05502

PATIENT

DRUGS (2)
  1. DOCETAXEL [Suspect]
     Indication: OESOPHAGEAL SQUAMOUS CELL CARCINOMA
  2. CARBOPLATIN [Suspect]
     Indication: OESOPHAGEAL SQUAMOUS CELL CARCINOMA
     Dosage: UNK

REACTIONS (1)
  - INTESTINAL OBSTRUCTION [None]
